FAERS Safety Report 7269954-2 (Version None)
Quarter: 2011Q1

REPORT INFORMATION
  Report Type: 
  Country: None (occurrence: None)
  Receive Date: 20110125
  Receipt Date: 20110125
  Transmission Date: 20110831
  Serious: Yes (Disabling)
  Sender: FDA-Public Use
  Company Number: None

PATIENT
  Age: 20 Year
  Sex: Female
  Weight: 65.318 kg

DRUGS (1)
  1. VANCOMYCIN [Suspect]
     Indication: WOUND
     Dosage: 1 GM EVERY 12 HOURS IV BOLUS PARTIAL DOSE
     Route: 040
     Dates: start: 20110119, end: 20110119

REACTIONS (4)
  - SKIN WARM [None]
  - FLUSHING [None]
  - HEART RATE INCREASED [None]
  - CHEST PAIN [None]
